FAERS Safety Report 9218032 (Version 5)
Quarter: 2013Q3

REPORT INFORMATION
  Report Type: Report from Study
  Country: US (occurrence: US)
  Receive Date: 20130408
  Receipt Date: 20130726
  Transmission Date: 20140515
  Serious: Yes (Hospitalization)
  Sender: FDA-Public Use
  Company Number: US-ROCHE-1150244

PATIENT
  Age: 46 Year
  Sex: Female
  Weight: 54.52 kg

DRUGS (20)
  1. TRASTUZUMAB EMTANSINE [Suspect]
     Indication: BREAST CANCER METASTATIC
     Dosage: LAST DOSE: 12/OCT/2012
     Route: 042
     Dates: start: 20120920
  2. PACLITAXEL [Suspect]
     Indication: BREAST CANCER METASTATIC
     Dosage: LAST DOSE: 19/OCT/2012
     Route: 042
     Dates: start: 20120920
  3. AZATHIOPRINE [Concomitant]
     Indication: AUTOIMMUNE HEPATITIS
     Route: 065
     Dates: start: 2005
  4. BUDESONIDE [Concomitant]
     Indication: AUTOIMMUNE HEPATITIS
     Route: 065
     Dates: start: 2005
  5. LORAZEPAM [Concomitant]
     Indication: ANXIETY
     Route: 065
     Dates: start: 201208
  6. ASPIRIN EC [Concomitant]
     Indication: CARDIOVASCULAR EVENT PROPHYLAXIS
     Route: 065
     Dates: start: 201208
  7. ASPIRIN EC [Concomitant]
     Indication: ANTICOAGULANT THERAPY
  8. LISINOPRIL [Concomitant]
     Indication: CARDIOVASCULAR EVENT PROPHYLAXIS
     Route: 065
     Dates: start: 201208, end: 20121101
  9. DALTEPARIN [Concomitant]
     Indication: COAGULOPATHY
     Dosage: DOSE REPORTED AS 12500 UNITS.
     Route: 065
     Dates: start: 201110, end: 20121113
  10. ONDANSETRON [Concomitant]
     Indication: NAUSEA
     Route: 065
     Dates: start: 20120920, end: 20121019
  11. TRAMADOL [Concomitant]
     Indication: PAIN
     Route: 065
     Dates: start: 20120920, end: 20121019
  12. DEXAMETHASONE [Concomitant]
     Route: 065
     Dates: start: 20120920, end: 20121019
  13. GRANISETRON [Concomitant]
     Route: 065
     Dates: start: 20120920, end: 20121019
  14. FAMOTIDINE [Concomitant]
     Route: 065
     Dates: start: 20120920, end: 20121019
  15. ACYCLOVIR [Concomitant]
     Indication: SKIN FISSURES
     Route: 065
     Dates: start: 20121026, end: 20121102
  16. LISINOPRIL [Concomitant]
     Indication: CARDIOVASCULAR EVENT PROPHYLAXIS
     Route: 065
     Dates: start: 20121102, end: 20121113
  17. LISINOPRIL [Concomitant]
     Route: 065
     Dates: start: 20121117
  18. ESOMEPRAZOLE [Concomitant]
     Indication: GASTROINTESTINAL HAEMORRHAGE
     Route: 041
     Dates: start: 20121113, end: 20121117
  19. NITROFURANTOIN [Concomitant]
     Indication: URINARY TRACT INFECTION
     Route: 065
     Dates: start: 20121116, end: 20121123
  20. POTASSIUM CHLORIDE [Concomitant]
     Route: 065
     Dates: start: 20121113

REACTIONS (5)
  - Extrasystoles [Recovered/Resolved]
  - Left ventricular dysfunction [Recovered/Resolved]
  - Cardiac failure congestive [Recovered/Resolved]
  - Pleural effusion [Recovered/Resolved]
  - Gastrointestinal haemorrhage [Recovered/Resolved]
